FAERS Safety Report 15352237 (Version 2)
Quarter: 2018Q4

REPORT INFORMATION
  Report Type: Report from Study
  Country: US (occurrence: US)
  Receive Date: 20180905
  Receipt Date: 20181109
  Transmission Date: 20190204
  Serious: Yes (Other)
  Sender: FDA-Public Use
  Company Number: US-GILEAD-2018-0361351

PATIENT
  Age: 66 Year
  Sex: Female

DRUGS (1)
  1. AMBRISENTAN [Suspect]
     Active Substance: AMBRISENTAN
     Indication: PULMONARY ARTERIAL HYPERTENSION
     Dosage: 10 MG, QD
     Route: 065
     Dates: start: 20160824, end: 20180831

REACTIONS (3)
  - Pulmonary veno-occlusive disease [Not Recovered/Not Resolved]
  - Malaise [Unknown]
  - Product use issue [Unknown]

NARRATIVE: CASE EVENT DATE: 2018
